FAERS Safety Report 22115140 (Version 1)
Quarter: 2023Q1

REPORT INFORMATION
  Report Type: Spontaneous
  Country: US (occurrence: None)
  Receive Date: 20230317
  Receipt Date: 20230317
  Transmission Date: 20230418
  Serious: No
  Sender: FDA-Public Use
  Company Number: None

PATIENT
  Age: 58 Year
  Sex: Male
  Weight: 85.28 kg

DRUGS (17)
  1. SPRYCEL [Suspect]
     Active Substance: DASATINIB
     Indication: Philadelphia positive chronic myeloid leukaemia
     Dosage: FREQUENCY : DAILY;?
     Route: 048
  2. ACETAMINOOPHEN [Concomitant]
  3. BUPROPION [Concomitant]
     Active Substance: BUPROPION
  4. CETIRIZINE [Concomitant]
  5. CLARITIN [Concomitant]
  6. DEPAKOTE [Concomitant]
  7. DIAZEPAM [Concomitant]
     Active Substance: DIAZEPAM
  8. DOXYCYCLINE [Concomitant]
     Active Substance: DOXYCYCLINE
  9. ELIQUIS [Concomitant]
  10. LISINOPRIL [Concomitant]
     Active Substance: LISINOPRIL
  11. METOPROLOL [Concomitant]
     Active Substance: METOPROLOL
  12. VITAMINS [Concomitant]
     Active Substance: VITAMINS
  13. NAMENDA [Concomitant]
     Active Substance: MEMANTINE HYDROCHLORIDE
  14. PRAVACHOL [Concomitant]
     Active Substance: PRAVASTATIN SODIUM
  15. RISPERIDONE [Concomitant]
  16. VITAMIN B12 [Concomitant]
  17. VITAMIN D3 [Concomitant]
     Active Substance: CHOLECALCIFEROL

REACTIONS (1)
  - Pulmonary oedema [None]
